FAERS Safety Report 16385442 (Version 1)
Quarter: 2019Q2

REPORT INFORMATION
  Report Type: Spontaneous
  Country: US (occurrence: US)
  Receive Date: 20190426
  Receipt Date: 20190426
  Transmission Date: 20190711
  Serious: Yes (Hospitalization)
  Sender: FDA-Public Use
  Company Number: None

PATIENT
  Age: 73 Year
  Sex: Female

DRUGS (26)
  1. ATORVASTATIN [Concomitant]
     Active Substance: ATORVASTATIN
  2. ORENCIA [Suspect]
     Active Substance: ABATACEPT
     Indication: RHEUMATOID ARTHRITIS
     Dosage: ?          OTHER FREQUENCY:QWK;?
     Route: 058
     Dates: start: 20161228
  3. ELIQUIES [Concomitant]
  4. JANUVIA [Concomitant]
     Active Substance: SITAGLIPTIN PHOSPHATE
  5. LEFLUNOMIDE. [Concomitant]
     Active Substance: LEFLUNOMIDE
  6. METOPROLOL TARTRATE. [Concomitant]
     Active Substance: METOPROLOL TARTRATE
  7. MYRBETRIQ [Concomitant]
     Active Substance: MIRABEGRON
  8. GABAPENTIN. [Concomitant]
     Active Substance: GABAPENTIN
  9. LEVOTHYROXIN [Concomitant]
     Active Substance: LEVOTHYROXINE
  10. OXYBUTYNIN. [Concomitant]
     Active Substance: OXYBUTYNIN CHLORIDE
  11. CYMBALTA [Concomitant]
     Active Substance: DULOXETINE HYDROCHLORIDE
  12. FUROSEMIDE. [Concomitant]
     Active Substance: FUROSEMIDE
  13. TOLTERODINE [Concomitant]
     Active Substance: TOLTERODINE
  14. VALACYCLOVIR [Concomitant]
     Active Substance: VALACYCLOVIR HYDROCHLORIDE
  15. HYDROXYCHLOR [Concomitant]
     Active Substance: HYDROXYCHLOROQUINE
  16. MULTI VIT [Concomitant]
     Active Substance: VITAMINS
  17. RANITIDINE. [Concomitant]
     Active Substance: RANITIDINE
  18. BIOTIN [Concomitant]
     Active Substance: BIOTIN
  19. NEXIUM [Concomitant]
     Active Substance: ESOMEPRAZOLE MAGNESIUM
  20. VIT D3/VIT C [Concomitant]
  21. CEPHALEXIN. [Concomitant]
     Active Substance: CEPHALEXIN
  22. DULOXETINE. [Concomitant]
     Active Substance: DULOXETINE
  23. HYDROCO/APAP [Concomitant]
     Active Substance: ACETAMINOPHEN\HYDROCODONE
  24. MAGNESIUM [Concomitant]
     Active Substance: MAGNESIUM
  25. ROSUBASTATIN [Concomitant]
  26. VICODIN [Concomitant]
     Active Substance: ACETAMINOPHEN\HYDROCODONE BITARTRATE

REACTIONS (2)
  - Fall [None]
  - Dysphonia [None]
